FAERS Safety Report 23123954 (Version 3)
Quarter: 2024Q1

REPORT INFORMATION
  Report Type: Spontaneous
  Country: US (occurrence: US)
  Receive Date: 20231030
  Receipt Date: 20240124
  Transmission Date: 20240410
  Serious: Yes (Hospitalization, Other)
  Sender: FDA-Public Use
  Company Number: US-BAYER-2023A149441

PATIENT
  Age: 23 Year
  Sex: Male

DRUGS (1)
  1. JIVI [Suspect]
     Active Substance: DAMOCTOCOG ALFA PEGOL
     Indication: Factor VIII deficiency
     Dosage: 4000 U; EVERY 5 DAYS
     Route: 042
     Dates: start: 202305

REACTIONS (4)
  - Mental disorder [None]
  - Mental disability [None]
  - Insomnia [None]
  - Epistaxis [None]

NARRATIVE: CASE EVENT DATE: 20230101
